FAERS Safety Report 7889469-8 (Version None)
Quarter: 2011Q4

REPORT INFORMATION
  Report Type: 
  Country: None (occurrence: None)
  Receive Date: 20111103
  Receipt Date: 20111028
  Transmission Date: 20120403
  Serious: Yes (Hospitalization, Other)
  Sender: FDA-Public Use
  Company Number: PHHY2011NL85744

PATIENT
  Age: 53 Year
  Sex: Male

DRUGS (3)
  1. METHIMAZOLE [Suspect]
     Indication: BASEDOW'S DISEASE
     Dosage: 30 MG, QD
  2. LEVOTHYROXINE SODIUM [Concomitant]
     Indication: BASEDOW'S DISEASE
  3. INSULIN [Concomitant]

REACTIONS (7)
  - PYREXIA [None]
  - MALAISE [None]
  - HEART RATE INCREASED [None]
  - PHARYNGEAL ERYTHEMA [None]
  - CHILLS [None]
  - BLOOD PRESSURE INCREASED [None]
  - AGRANULOCYTOSIS [None]
